FAERS Safety Report 7124343-6 (Version None)
Quarter: 2010Q4

REPORT INFORMATION
  Report Type: 
  Country: None (occurrence: None)
  Receive Date: 20101126
  Receipt Date: 20101122
  Transmission Date: 20110411
  Serious: Yes (Other)
  Sender: FDA-Public Use
  Company Number: CHPA2010US18090

PATIENT
  Age: 46 Year
  Sex: Male
  Weight: 92.971 kg

DRUGS (2)
  1. VOLTAREN [Suspect]
     Indication: EXOSTOSIS
     Dosage: 1 G BID OR TID
     Route: 061
     Dates: start: 20100601, end: 20101117
  2. VOLTAREN [Suspect]
     Indication: TENDON INJURY

REACTIONS (7)
  - HYPOAESTHESIA [None]
  - NERVE INJURY [None]
  - OFF LABEL USE [None]
  - PAIN IN EXTREMITY [None]
  - POOR PERIPHERAL CIRCULATION [None]
  - SCREAMING [None]
  - WRONG TECHNIQUE IN DRUG USAGE PROCESS [None]
